FAERS Safety Report 25818124 (Version 1)
Quarter: 2025Q3

REPORT INFORMATION
  Report Type: Spontaneous
  Country: US (occurrence: None)
  Receive Date: 20250917
  Receipt Date: 20250917
  Transmission Date: 20251021
  Serious: Yes (Hospitalization)
  Sender: FDA-CTU
  Company Number: None

PATIENT
  Age: 56 Year
  Sex: Female

DRUGS (1)
  1. VUMERITY [Suspect]
     Active Substance: DIROXIMEL FUMARATE
     Indication: Multiple sclerosis
     Dosage: 462MG TWICE DAILY ORAL
     Route: 048

REACTIONS (4)
  - Guillain-Barre syndrome [None]
  - Chronic inflammatory demyelinating polyradiculoneuropathy [None]
  - Condition aggravated [None]
  - Intracranial aneurysm [None]
